FAERS Safety Report 8500169-3 (Version None)
Quarter: 2012Q3

REPORT INFORMATION
  Report Type: 
  Country: None (occurrence: None)
  Receive Date: 20120710
  Receipt Date: 20120707
  Transmission Date: 20120928
  Serious: Yes (Hospitalization, Other)
  Sender: FDA-Public Use
  Company Number: CH-PFIZER INC-2012144612

PATIENT
  Age: 79 Year
  Sex: Male

DRUGS (5)
  1. RAMIPRIL [Suspect]
     Dosage: 2.5 MG, DAILY
     Route: 048
     Dates: end: 20120206
  2. METFORMIN HCL [Concomitant]
     Dosage: UNK
     Dates: end: 20120206
  3. PANTOPRAZOLE [Concomitant]
     Dosage: UNK
  4. CRESTOR [Concomitant]
     Dosage: UNK
  5. DIGOXIN [Suspect]
     Dosage: 0.25 MG, DAILY
     Route: 048
     Dates: end: 20120206

REACTIONS (6)
  - VOMITING [None]
  - RENAL FAILURE CHRONIC [None]
  - BLOOD SODIUM DECREASED [None]
  - OVERDOSE [None]
  - DEHYDRATION [None]
  - BLOOD POTASSIUM DECREASED [None]
